FAERS Safety Report 6956947-5 (Version None)
Quarter: 2010Q3

REPORT INFORMATION
  Report Type: 
  Country: None (occurrence: None)
  Receive Date: 20100827
  Receipt Date: 20100827
  Transmission Date: 20110219
  Serious: Yes (Other)
  Sender: FDA-Public Use
  Company Number: None

PATIENT
  Age: 54 Year
  Sex: Female
  Weight: 86.1834 kg

DRUGS (2)
  1. LEVOTHYROXINE SODIUM [Suspect]
     Indication: AUTOIMMUNE THYROIDITIS
     Dosage: 150 MCG 1/DAY ORAL (047)
     Route: 048
     Dates: start: 20090201, end: 20100301
  2. LOTENSIN [Concomitant]

REACTIONS (4)
  - HYPERTHYROIDISM [None]
  - HYPOTHYROIDISM [None]
  - PRODUCT MEASURED POTENCY ISSUE [None]
  - PRODUCT SUBSTITUTION ISSUE [None]
